FAERS Safety Report 17246147 (Version 2)
Quarter: 2020Q1

REPORT INFORMATION
  Report Type: Spontaneous
  Country: US (occurrence: US)
  Receive Date: 20200108
  Receipt Date: 20200113
  Transmission Date: 20200409
  Serious: No
  Sender: FDA-Public Use
  Company Number: US-UNITED THERAPEUTICS-UNT-2019-019952

PATIENT
  Age: 74 Year
  Sex: Female
  Weight: 112.93 kg

DRUGS (4)
  1. REMODULIN [Suspect]
     Active Substance: TREPROSTINIL
     Indication: PULMONARY ARTERIAL HYPERTENSION
     Dosage: 0.010 ?G/KG, CONTINUING
     Route: 058
     Dates: start: 20190813
  2. TADALAFIL. [Concomitant]
     Active Substance: TADALAFIL
     Indication: PRODUCT USED FOR UNKNOWN INDICATION
     Dosage: UNK
     Route: 065
  3. OPSUMIT [Concomitant]
     Active Substance: MACITENTAN
     Indication: PRODUCT USED FOR UNKNOWN INDICATION
     Dosage: UNK
     Route: 065
  4. REMODULIN [Suspect]
     Active Substance: TREPROSTINIL
     Dosage: 0.012 ?G/KG, CONTINUING
     Route: 058

REACTIONS (12)
  - Peripheral swelling [Unknown]
  - Pain in extremity [Unknown]
  - Diarrhoea [Unknown]
  - Pain in jaw [Unknown]
  - Infusion site pain [Unknown]
  - Nausea [Unknown]
  - Headache [Unknown]
  - Wheezing [Unknown]
  - Infusion site erythema [Unknown]
  - Productive cough [Unknown]
  - Infusion site swelling [Unknown]
  - Insomnia [Unknown]

NARRATIVE: CASE EVENT DATE: 2019
